FAERS Safety Report 25211464 (Version 3)
Quarter: 2025Q3

REPORT INFORMATION
  Report Type: Report from Study
  Country: US (occurrence: US)
  Receive Date: 20250418
  Receipt Date: 20250803
  Transmission Date: 20251021
  Serious: Yes (Other)
  Sender: ALEXION PHARMACEUTICALS
  Company Number: US-AstraZeneca-CH-00849342A

PATIENT
  Sex: Female

DRUGS (2)
  1. ULTOMIRIS [Suspect]
     Active Substance: RAVULIZUMAB-CWVZ
     Indication: Myasthenia gravis
     Route: 065
  2. MESTINON [Concomitant]
     Active Substance: PYRIDOSTIGMINE BROMIDE
     Route: 065

REACTIONS (11)
  - Pulmonary embolism [Unknown]
  - Asthenia [Not Recovered/Not Resolved]
  - Limb discomfort [Unknown]
  - Muscular weakness [Unknown]
  - Polyuria [Unknown]
  - Somnolence [Unknown]
  - Paraesthesia [Unknown]
  - Pain [Unknown]
  - Mobility decreased [Unknown]
  - Malaise [Unknown]
  - Fatigue [Unknown]
